FAERS Safety Report 9135269 (Version 1)
Quarter: 2013Q1

REPORT INFORMATION
  Report Type: Spontaneous
  Country: US (occurrence: US)
  Receive Date: 20130304
  Receipt Date: 20130304
  Transmission Date: 20140127
  Serious: No
  Sender: FDA-Public Use
  Company Number: US-BAYER-2013-021461

PATIENT
  Age: 79 Year
  Sex: Female
  Weight: 65.76 kg

DRUGS (3)
  1. ALEVE CAPLET/TABLET,MIDOL EXTENDED RELIEF CAPLET [Suspect]
     Indication: PAIN IN EXTREMITY
     Dosage: 3 DF, BID
     Route: 048
     Dates: start: 201208
  2. ALEVE CAPLET/TABLET,MIDOL EXTENDED RELIEF CAPLET [Suspect]
     Indication: BURNING SENSATION
  3. SEREVANT INHALER [Concomitant]

REACTIONS (2)
  - Incorrect drug administration duration [None]
  - Off label use [None]
